FAERS Safety Report 23029787 (Version 1)
Quarter: 2023Q4

REPORT INFORMATION
  Report Type: Spontaneous
  Country: JP (occurrence: JP)
  Receive Date: 20231004
  Receipt Date: 20231004
  Transmission Date: 20240110
  Serious: Yes (Hospitalization)
  Sender: FDA-Public Use
  Company Number: JP-Eisai-202307412_LEN-EC_P_1

PATIENT
  Age: 57 Year
  Sex: Female

DRUGS (3)
  1. LENVIMA [Suspect]
     Active Substance: LENVATINIB
     Indication: Endometrial cancer
     Route: 048
     Dates: start: 202302, end: 202304
  2. KEYTRUDA [Concomitant]
     Active Substance: PEMBROLIZUMAB
     Indication: Endometrial cancer
     Route: 041
     Dates: start: 202302, end: 202304
  3. PREDNISOLONE [Concomitant]
     Active Substance: PREDNISOLONE
     Indication: Thyroiditis subacute
     Dosage: UNKNOWN DOSE AND FREQUENCY
     Route: 065
     Dates: start: 202304

REACTIONS (2)
  - Schizophrenia [Unknown]
  - Thyroiditis subacute [Unknown]

NARRATIVE: CASE EVENT DATE: 20230401
